FAERS Safety Report 16943817 (Version 3)
Quarter: 2020Q1

REPORT INFORMATION
  Report Type: Spontaneous
  Country: IT (occurrence: IT)
  Receive Date: 20191022
  Receipt Date: 20200326
  Transmission Date: 20200409
  Serious: Yes (Other)
  Sender: FDA-Public Use
  Company Number: IT-AUROBINDO-AUR-APL-2019-067990

PATIENT
  Age: 23 Year
  Sex: Female

DRUGS (3)
  1. FLUIMUCIL [Suspect]
     Active Substance: ACETYLCYSTEINE
     Indication: PRODUCT USED FOR UNKNOWN INDICATION
     Dosage: 1800 MILLIGRAM, TOTAL
     Route: 048
  2. BIOCHETASI [POTASSIUM CITRATE\SODIUM CITRATE\VITAMINS] [Suspect]
     Active Substance: POTASSIUM CITRATE\SODIUM CITRATE\VITAMINS
     Indication: PRODUCT USED FOR UNKNOWN INDICATION
     Dosage: UNK
     Route: 048
  3. PARACETAMOL [Suspect]
     Active Substance: ACETAMINOPHEN
     Indication: PRODUCT USED FOR UNKNOWN INDICATION
     Dosage: 9 GRAM, TOTAL
     Route: 048

REACTIONS (3)
  - Substance abuse [Recovering/Resolving]
  - Vomiting [Recovering/Resolving]
  - Toxicity to various agents [Recovering/Resolving]

NARRATIVE: CASE EVENT DATE: 20191004
